FAERS Safety Report 19762201 (Version 1)
Quarter: 2021Q3

REPORT INFORMATION
  Report Type: Spontaneous
  Country: US (occurrence: US)
  Receive Date: 20210829
  Receipt Date: 20210829
  Transmission Date: 20211014
  Serious: Yes (Disabling)
  Sender: FDA-Public Use
  Company Number: None

PATIENT
  Age: 43 Year
  Sex: Female
  Weight: 58.5 kg

DRUGS (2)
  1. COVID?19 VACCINE NOS. [Suspect]
     Active Substance: COVID-19 VACCINE NOS
  2. NITROFURANTOIN MONOHYDRATE MACROCRYSTALS [Suspect]
     Active Substance: NITROFURANTOIN\NITROFURANTOIN MONOHYDRATE
     Indication: URINARY TRACT INFECTION
     Dosage: ?          QUANTITY:1 CAPSULE(S);?
     Route: 048
     Dates: start: 20210826, end: 20210828

REACTIONS (9)
  - Starvation [None]
  - Nausea [None]
  - Abdominal pain [None]
  - Therapy interrupted [None]
  - Hypophagia [None]
  - Bacterial test positive [None]
  - Memory impairment [None]
  - Hunger [None]
  - Hypermetabolism [None]

NARRATIVE: CASE EVENT DATE: 20210828
